FAERS Safety Report 25615562 (Version 1)
Quarter: 2025Q3

REPORT INFORMATION
  Report Type: Report from Study
  Country: US (occurrence: US)
  Receive Date: 20250729
  Receipt Date: 20250729
  Transmission Date: 20251021
  Serious: Yes (Other)
  Sender: ROCHE
  Company Number: US-ROCHE-10000347510

PATIENT

DRUGS (4)
  1. RITUXIMAB [Suspect]
     Active Substance: RITUXIMAB
     Indication: Prophylaxis against transplant rejection
     Route: 065
  2. FLUDARABINE [Suspect]
     Active Substance: FLUDARABINE PHOSPHATE
     Indication: Prophylaxis against transplant rejection
     Route: 065
  3. CYCLOPHOSPHAMIDE [Suspect]
     Active Substance: CYCLOPHOSPHAMIDE
     Indication: Prophylaxis against transplant rejection
     Route: 065
  4. CLOFARABINE [Suspect]
     Active Substance: CLOFARABINE
     Indication: Prophylaxis against transplant rejection
     Route: 065

REACTIONS (26)
  - Acute myeloid leukaemia [Unknown]
  - Breast cancer [Unknown]
  - Oesophageal carcinoma [Unknown]
  - Renal cancer [Unknown]
  - Malignant neoplasm of renal pelvis [Unknown]
  - Laryngeal cancer [Unknown]
  - Lip neoplasm malignant stage unspecified [Unknown]
  - Lung neoplasm malignant [Unknown]
  - Bronchial carcinoma [Unknown]
  - Malignant melanoma [Unknown]
  - Non-Hodgkin^s lymphoma [Unknown]
  - Nasal cavity cancer [Unknown]
  - Malignant middle ear neoplasm [Unknown]
  - Skin cancer [Unknown]
  - Pancreatic carcinoma [Unknown]
  - Penile cancer [Unknown]
  - Prostate cancer [Unknown]
  - Rectal cancer [Unknown]
  - Salivary gland cancer [Unknown]
  - Colon cancer [Unknown]
  - Gastric cancer [Unknown]
  - Testis cancer [Unknown]
  - Thyroid cancer [Unknown]
  - Tongue neoplasm malignant stage unspecified [Unknown]
  - Bladder cancer [Unknown]
  - Uterine cancer [Unknown]
